FAERS Safety Report 6274447-5 (Version None)
Quarter: 2009Q3

REPORT INFORMATION
  Report Type: 
  Country: None (occurrence: None)
  Receive Date: 20090720
  Receipt Date: 20090706
  Transmission Date: 20100115
  Serious: Yes (Hospitalization, Other)
  Sender: FDA-Public Use
  Company Number: BR-MEDIMMUNE-MEDI-0008670

PATIENT
  Sex: Female

DRUGS (4)
  1. SYNAGIS [Suspect]
     Dates: start: 20090420, end: 20090520
  2. SILDENAFIL CITRATE [Concomitant]
     Route: 042
  3. FUROSEMIDE [Concomitant]
     Route: 042
  4. DIGESIL [Concomitant]
     Route: 042

REACTIONS (1)
  - PNEUMONIA [None]
